FAERS Safety Report 11197438 (Version 1)
Quarter: 2015Q2

REPORT INFORMATION
  Report Type: Spontaneous
  Country: US (occurrence: US)
  Receive Date: 20150617
  Receipt Date: 20150617
  Transmission Date: 20150821
  Serious: Yes (Hospitalization, Other)
  Sender: FDA-Public Use
  Company Number: US-GLAXOSMITHKLINE-US2015084805

PATIENT
  Age: 57 Year
  Sex: Male

DRUGS (1)
  1. PROMACTA [Suspect]
     Active Substance: ELTROMBOPAG OLAMINE
     Indication: IMMUNE THROMBOCYTOPENIC PURPURA
     Dosage: 50 MG, QD
     Route: 048
     Dates: start: 201501

REACTIONS (7)
  - Platelet count decreased [Recovering/Resolving]
  - Hepatic encephalopathy [Recovering/Resolving]
  - Internal haemorrhage [Recovering/Resolving]
  - Ammonia increased [Recovering/Resolving]
  - Pneumonia fungal [Recovering/Resolving]
  - Thrombosis [Recovering/Resolving]
  - Incoherent [Recovered/Resolved]

NARRATIVE: CASE EVENT DATE: 201501
